FAERS Safety Report 9633901 (Version 1)
Quarter: 2013Q4

REPORT INFORMATION
  Report Type: Spontaneous
  Country: IT (occurrence: IT)
  Receive Date: 20131021
  Receipt Date: 20131021
  Transmission Date: 20140711
  Serious: Yes (Other)
  Sender: FDA-Public Use
  Company Number: IT-JNJFOC-20131008138

PATIENT
  Age: 20 Year
  Sex: Male

DRUGS (2)
  1. INVEGA [Suspect]
     Indication: PRODUCT USED FOR UNKNOWN INDICATION
     Route: 048
     Dates: start: 20131011, end: 20131011
  2. FLUOXETINA [Suspect]
     Indication: PRODUCT USED FOR UNKNOWN INDICATION
     Route: 048
     Dates: start: 20131011, end: 20131011

REACTIONS (6)
  - Self injurious behaviour [Unknown]
  - Intentional overdose [Unknown]
  - Dyskinesia [Unknown]
  - Dystonia [Unknown]
  - Hyperreflexia [Unknown]
  - Myoclonus [Unknown]
